FAERS Safety Report 4530134-2 (Version None)
Quarter: 2004Q4

REPORT INFORMATION
  Report Type: 
  Country: None (occurrence: None)
  Receive Date: 20041217
  Receipt Date: 20041206
  Transmission Date: 20050328
  Serious: Yes (Hospitalization)
  Sender: FDA-Public Use
  Company Number: JP-JNJFOC-20041002827

PATIENT
  Age: 62 Year
  Sex: Male

DRUGS (4)
  1. ITRIZOLE [Suspect]
     Indication: ONYCHOMYCOSIS
     Route: 049
     Dates: start: 20040906, end: 20040912
  2. ANTIHYPERTENSIVE [Concomitant]
     Indication: HYPERTENSION
     Route: 065
  3. BETAMETHASONE VALERATE [Concomitant]
     Indication: ECZEMA
     Route: 065
  4. GENTAMICIN [Concomitant]
     Indication: ECZEMA
     Route: 065

REACTIONS (3)
  - DYSPNOEA [None]
  - GENERALISED OEDEMA [None]
  - PULMONARY OEDEMA [None]
